FAERS Safety Report 10255346 (Version 1)
Quarter: 2014Q2

REPORT INFORMATION
  Report Type: Spontaneous
  Country: US (occurrence: US)
  Receive Date: 20140624
  Receipt Date: 20140624
  Transmission Date: 20141212
  Serious: No
  Sender: FDA-Public Use
  Company Number: US-PFIZER INC-2014173382

PATIENT
  Age: 60 Year
  Sex: Female
  Weight: 61.22 kg

DRUGS (3)
  1. NEURONTIN [Suspect]
     Dosage: UNK
  2. METHOCARBAMOL [Concomitant]
     Indication: MUSCLE RELAXANT THERAPY
     Dosage: UNK (UP TO 1500MG), 2X/DAY
  3. DIAZEPAM [Concomitant]
     Dosage: 10 MG, DAILY

REACTIONS (1)
  - Drug ineffective [Unknown]
